FAERS Safety Report 4469202-2 (Version None)
Quarter: 2004Q4

REPORT INFORMATION
  Report Type: 
  Country: None (occurrence: None)
  Receive Date: 20041005
  Receipt Date: 20040927
  Transmission Date: 20050328
  Serious: Yes (Life-Threatening, Hospitalization)
  Sender: FDA-Public Use
  Company Number: 2004GB02307

PATIENT
  Age: 85 Year
  Sex: Female

DRUGS (6)
  1. LISINOPRIL [Suspect]
     Indication: CARDIAC FAILURE
     Dosage: 5 MG DAILY PO
     Route: 048
     Dates: start: 20030109, end: 20040723
  2. ADCAL-D3 [Concomitant]
  3. IRON [Concomitant]
  4. CETIRIZINE HCL [Concomitant]
  5. FRUSEMIDE [Concomitant]
  6. ERYTHROMYCIN [Concomitant]

REACTIONS (3)
  - DYSPNOEA [None]
  - SPEECH DISORDER [None]
  - SWOLLEN TONGUE [None]
